FAERS Safety Report 17686030 (Version 1)
Quarter: 2020Q2

REPORT INFORMATION
  Report Type: Spontaneous
  Country: US (occurrence: US)
  Receive Date: 20200420
  Receipt Date: 20200420
  Transmission Date: 20200714
  Serious: Yes (Hospitalization)
  Sender: FDA-Public Use
  Company Number: None

PATIENT
  Age: 52 Year
  Sex: Female

DRUGS (7)
  1. OXYCODONE IR [Concomitant]
     Active Substance: OXYCODONE
  2. MORPHINE SULFATE ER [Concomitant]
     Active Substance: MORPHINE SULFATE
  3. ZONEGRAN [Concomitant]
     Active Substance: ZONISAMIDE
  4. DEXILANT [Concomitant]
     Active Substance: DEXLANSOPRAZOLE
  5. LETROZOLE. [Concomitant]
     Active Substance: LETROZOLE
  6. IBRANCE [Suspect]
     Active Substance: PALBOCICLIB
     Indication: BREAST CANCER FEMALE
     Dosage: ?          OTHER FREQUENCY:DAILY X 21 DAYS;?
     Route: 048
     Dates: start: 20181214
  7. ONDANSETRON [Concomitant]
     Active Substance: ONDANSETRON

REACTIONS (1)
  - Hospitalisation [None]

NARRATIVE: CASE EVENT DATE: 20200417
